FAERS Safety Report 5508469-6 (Version None)
Quarter: 2007Q4

REPORT INFORMATION
  Report Type: 
  Country: None (occurrence: None)
  Receive Date: 20071031
  Receipt Date: 20070806
  Transmission Date: 20080405
  Serious: No
  Sender: FDA-Public Use
  Company Number: 200712643BWH

PATIENT
  Sex: Male

DRUGS (3)
  1. NEXAVAR [Suspect]
     Indication: HEPATIC NEOPLASM MALIGNANT
     Dosage: 400 MG, BID, ORAL; 600 MG, TOTAL DAILY, ORAL
     Route: 048
     Dates: start: 20070301
  2. NEXAVAR [Suspect]
     Indication: METASTASES TO ABDOMINAL CAVITY
     Dosage: 400 MG, BID, ORAL; 600 MG, TOTAL DAILY, ORAL
     Route: 048
     Dates: start: 20070301
  3. ASPIRIN [Concomitant]

REACTIONS (11)
  - BLISTER [None]
  - CONSTIPATION [None]
  - DIARRHOEA [None]
  - EAR CONGESTION [None]
  - GAIT DISTURBANCE [None]
  - MOUTH BREATHING [None]
  - NASAL CONGESTION [None]
  - PAIN IN EXTREMITY [None]
  - PALMAR-PLANTAR ERYTHRODYSAESTHESIA SYNDROME [None]
  - PHARYNGOLARYNGEAL PAIN [None]
  - THROAT TIGHTNESS [None]
